FAERS Safety Report 5319506-6 (Version None)
Quarter: 2007Q2

REPORT INFORMATION
  Report Type: 
  Country: None (occurrence: None)
  Receive Date: 20070508
  Receipt Date: 20070426
  Transmission Date: 20071010
  Serious: Yes (Other)
  Sender: FDA-Public Use
  Company Number: FR-ELI_LILLY_AND_COMPANY-FR200704005484

PATIENT
  Age: 51 Year
  Sex: Female

DRUGS (3)
  1. FORTEO [Suspect]
     Indication: OSTEOPOROSIS
     Dosage: 20 UG, DAILY (1/D)
     Route: 058
     Dates: start: 20051220, end: 20070221
  2. LEVOTHYROXINE SODIUM [Concomitant]
     Dosage: UNK, UNK
     Dates: start: 20061101
  3. ANTIDEPRESSANTS [Concomitant]

REACTIONS (1)
  - FATIGUE [None]
